FAERS Safety Report 26187834 (Version 1)
Quarter: 2025Q4

REPORT INFORMATION
  Report Type: Spontaneous
  Country: EU (occurrence: EU)
  Receive Date: 20251222
  Receipt Date: 20251222
  Transmission Date: 20260118
  Serious: Yes (Hospitalization, Other)
  Sender: ALEXION PHARMACEUTICALS
  Company Number: EU-ASTRAZENECA-202512GLO019607ES

PATIENT
  Age: 79 Year
  Sex: Male

DRUGS (15)
  1. OMEPRAZOLE [Suspect]
     Active Substance: OMEPRAZOLE
     Indication: Prophylaxis against gastrointestinal ulcer
     Dosage: 20 MILLIGRAM
     Route: 061
  2. CYANOCOBALAMIN [Concomitant]
     Active Substance: CYANOCOBALAMIN
  3. FOLIC ACID [Suspect]
     Active Substance: FOLIC ACID
  4. ATORVASTATIN [Concomitant]
     Active Substance: ATORVASTATIN
  5. 4.0 SBELT [Concomitant]
  6. FUROSEMIDE [Concomitant]
     Active Substance: FUROSEMIDE
  7. CALCIFEDIOL [Concomitant]
     Active Substance: CALCIFEDIOL
  8. EMPAGLIFLOZIN [Concomitant]
     Active Substance: EMPAGLIFLOZIN
  9. INSULIN ASPART [Concomitant]
     Active Substance: INSULIN ASPART
  10. SEMAGLUTIDE [Concomitant]
     Active Substance: SEMAGLUTIDE
  11. INSULIN GLARGINE [Concomitant]
     Active Substance: INSULIN GLARGINE
  12. VALSARTAN [Concomitant]
     Active Substance: VALSARTAN
  13. ASPIRIN [Concomitant]
     Active Substance: ASPIRIN
  14. CARVEDILOL [Concomitant]
     Active Substance: CARVEDILOL
  15. TAMSULOSIN [Concomitant]
     Active Substance: TAMSULOSIN

REACTIONS (5)
  - Clostridium difficile infection [Recovered/Resolved]
  - Gastroenteritis rotavirus [Unknown]
  - Renal impairment [Unknown]
  - Cholelithiasis [Not Recovered/Not Resolved]
  - Biliary sepsis [Recovered/Resolved]

NARRATIVE: CASE EVENT DATE: 20250601
